FAERS Safety Report 9332970 (Version 6)
Quarter: 2016Q2

REPORT INFORMATION
  Report Type: Spontaneous
  Country: US (occurrence: US)
  Receive Date: 20130606
  Receipt Date: 20160505
  Transmission Date: 20160815
  Serious: Yes (Other)
  Sender: FDA-Public Use
  Company Number: US-PFIZER INC-2013170434

PATIENT
  Age: 52 Year
  Sex: Male

DRUGS (1)
  1. PRISTIQ EXTENDED-RELEASE [Suspect]
     Active Substance: DESVENLAFAXINE SUCCINATE
     Indication: DEPRESSION
     Dosage: 100 MG, 1X/DAY

REACTIONS (3)
  - Suicidal behaviour [Recovered/Resolved]
  - Depressed mood [Unknown]
  - Suicidal ideation [Recovered/Resolved]
